FAERS Safety Report 8508705-8 (Version None)
Quarter: 2012Q3

REPORT INFORMATION
  Report Type: 
  Country: None (occurrence: None)
  Receive Date: 20120713
  Receipt Date: 20120709
  Transmission Date: 20120928
  Serious: No
  Sender: FDA-Public Use
  Company Number: US-PFIZER INC-2012164572

PATIENT
  Sex: Female
  Weight: 61.224 kg

DRUGS (3)
  1. DILANTIN [Suspect]
     Dosage: UNK
     Route: 048
  2. DILANTIN [Suspect]
     Indication: EPILEPSY
     Dosage: 100MG AND 30MG IN MORNING, 100MG IN AFTERNOON AND 100MG AND 30MG IN NIGHT
     Route: 048
  3. PHENOBARBITAL TAB [Concomitant]
     Indication: EPILEPSY
     Dosage: UNK

REACTIONS (1)
  - NEUROPATHY PERIPHERAL [None]
